FAERS Safety Report 18087524 (Version 5)
Quarter: 2021Q1

REPORT INFORMATION
  Report Type: Report from Study
  Country: US (occurrence: US)
  Receive Date: 20200729
  Receipt Date: 20210322
  Transmission Date: 20210419
  Serious: Yes (Other)
  Sender: FDA-Public Use
  Company Number: US-GLAXOSMITHKLINE-US2019TSO205122

PATIENT
  Age: 69 Year
  Sex: Female

DRUGS (6)
  1. NIRAPARIB [Suspect]
     Active Substance: NIRAPARIB
     Dosage: 200 MG  AT 8PM WITHOUT FOOD
     Route: 048
  2. NIRAPARIB [Suspect]
     Active Substance: NIRAPARIB
     Dosage: 200 MG, QD
  3. NIRAPARIB [Suspect]
     Active Substance: NIRAPARIB
     Indication: OVARIAN CANCER
     Dosage: 200 MG, QD 8PM WITHOUT FOOD
     Route: 048
     Dates: start: 20191105
  4. NIRAPARIB [Suspect]
     Active Substance: NIRAPARIB
     Dosage: 200 MG, QD
  5. NIRAPARIB [Suspect]
     Active Substance: NIRAPARIB
     Dosage: 200 MG, QD
     Route: 048
  6. NIRAPARIB [Suspect]
     Active Substance: NIRAPARIB
     Dosage: 200 MG, QD

REACTIONS (14)
  - Nausea [Unknown]
  - Neoplasm [Unknown]
  - Muscle rigidity [Recovered/Resolved]
  - Constipation [Recovering/Resolving]
  - Product dose omission issue [Unknown]
  - Stent placement [Unknown]
  - Device related infection [Recovering/Resolving]
  - Joint stiffness [Recovered/Resolved]
  - Pain [Not Recovered/Not Resolved]
  - Fatigue [Not Recovered/Not Resolved]
  - Carbohydrate antigen 125 [Unknown]
  - Off label use [Unknown]
  - Renal impairment [Recovering/Resolving]
  - Irritable bowel syndrome [Recovered/Resolved]

NARRATIVE: CASE EVENT DATE: 202008
